FAERS Safety Report 25894518 (Version 1)
Quarter: 2025Q4

REPORT INFORMATION
  Report Type: Spontaneous
  Country: EU (occurrence: EU)
  Receive Date: 20251008
  Receipt Date: 20251008
  Transmission Date: 20260118
  Serious: Yes (Life-Threatening, Hospitalization)
  Sender: ROCHE
  Company Number: EU-BoehringerIngelheim-2025-BI-099200

PATIENT
  Age: 51 Year
  Sex: Male

DRUGS (1)
  1. ALTEPLASE [Suspect]
     Active Substance: ALTEPLASE
     Indication: Ischaemic stroke
     Route: 042

REACTIONS (5)
  - Respiratory failure [Unknown]
  - Stupor [Unknown]
  - Speech disorder [Unknown]
  - Drug ineffective [Unknown]
  - Dysphagia [Unknown]
